FAERS Safety Report 6012533-5 (Version None)
Quarter: 2008Q4

REPORT INFORMATION
  Report Type: 
  Country: None (occurrence: None)
  Receive Date: 20081218
  Receipt Date: 20081202
  Transmission Date: 20090506
  Serious: No
  Sender: FDA-Public Use
  Company Number: US-B.I. PHARMACEUTICALS,INC./RIDGEFIELD-2008-BP-16855BP

PATIENT
  Sex: Female

DRUGS (14)
  1. CATAPRES-TTS-1 [Suspect]
     Indication: HYPERTENSION
     Dosage: .3MG
     Route: 061
     Dates: start: 20081009, end: 20081108
  2. LASIX [Concomitant]
     Indication: CARDIAC FAILURE CONGESTIVE
  3. LISINOPRIL [Concomitant]
  4. HYDROCHLOROTHIAZIDE [Concomitant]
     Indication: CARDIAC FAILURE CONGESTIVE
  5. COREG [Concomitant]
  6. AMARYL [Concomitant]
     Indication: DIABETES MELLITUS
  7. JANUVIA [Concomitant]
     Indication: DIABETES MELLITUS
  8. IMDUR [Concomitant]
  9. LANOXIN [Concomitant]
  10. HYDRALAZINE HCL [Concomitant]
  11. DIOVAN [Concomitant]
  12. ASPIRIN [Concomitant]
  13. CLONIDINE [Concomitant]
  14. K-DUR [Concomitant]

REACTIONS (6)
  - APPLICATION SITE DERMATITIS [None]
  - APPLICATION SITE HAEMATOMA [None]
  - APPLICATION SITE PRURITUS [None]
  - APPLICATION SITE RASH [None]
  - BLOOD PRESSURE INADEQUATELY CONTROLLED [None]
  - SKIN EXFOLIATION [None]
